FAERS Safety Report 17483517 (Version 3)
Quarter: 2020Q1

REPORT INFORMATION
  Report Type: Not Available
  Country: US (occurrence: US)
  Receive Date: 20200302
  Receipt Date: 20200316
  Transmission Date: 20200409
  Serious: No
  Sender: FDA-Public Use
  Company Number: US-NEUROCRINE BIOSCIENCES INC.-2020NBI00585

PATIENT
  Age: 77 Year
  Sex: Female

DRUGS (6)
  1. HALDOL [Concomitant]
     Active Substance: HALOPERIDOL
  2. ADVIL [Concomitant]
     Active Substance: IBUPROFEN
  3. BUPROPION. [Concomitant]
     Active Substance: BUPROPION
  4. INGREZZA [Suspect]
     Active Substance: VALBENAZINE
     Indication: TARDIVE DYSKINESIA
     Dosage: STARTER PACK
     Route: 048
     Dates: start: 20200123, end: 20200224
  5. ATORVASTATIN [Concomitant]
     Active Substance: ATORVASTATIN
  6. AMLODIPINE [Concomitant]
     Active Substance: AMLODIPINE BESYLATE

REACTIONS (4)
  - Dizziness [Unknown]
  - Asthenia [Unknown]
  - Somnolence [Recovered/Resolved]
  - Fatigue [Recovered/Resolved]

NARRATIVE: CASE EVENT DATE: 2020
